FAERS Safety Report 26184306 (Version 1)
Quarter: 2025Q4

REPORT INFORMATION
  Report Type: Report from Study
  Country: US (occurrence: US)
  Receive Date: 20251222
  Receipt Date: 20251222
  Transmission Date: 20260118
  Serious: No
  Sender: TOLMAR
  Company Number: US-Tolmar-TLM-2025-09415

PATIENT
  Age: 60 Year
  Sex: Male

DRUGS (2)
  1. ELIGARD [Suspect]
     Active Substance: LEUPROLIDE ACETATE
     Indication: Neuroendocrine tumour
     Route: 058
  2. DEVICE [Suspect]
     Active Substance: DEVICE
     Indication: Neuroendocrine tumour

REACTIONS (1)
  - Off label use [Unknown]
